FAERS Safety Report 12659162 (Version 22)
Quarter: 2019Q1

REPORT INFORMATION
  Report Type: Spontaneous
  Country: US (occurrence: US)
  Receive Date: 20160817
  Receipt Date: 20190208
  Transmission Date: 20190417
  Serious: Yes (Hospitalization, Other)
  Sender: FDA-Public Use
  Company Number: US-PFIZER INC-2016366847

PATIENT
  Age: 68 Year
  Sex: Female
  Weight: 79 kg

DRUGS (44)
  1. CYANOCOBALAMIN. [Concomitant]
     Active Substance: CYANOCOBALAMIN
     Dosage: 1000 UG, UNK
     Route: 030
     Dates: start: 20160405
  2. CYANOCOBALAMIN. [Concomitant]
     Active Substance: CYANOCOBALAMIN
     Dosage: 1000 UG, UNK, (1000 MCG/ML, 1 ML IM EVERY 2 WEEKS)
     Route: 030
     Dates: start: 20160712
  3. PROCTOZONE HC [Concomitant]
     Active Substance: HYDROCORTISONE
     Dosage: UNK, AS NEEDED (2.5 % CREAM  PRN Q4 HOURS)
     Route: 054
     Dates: start: 20090716
  4. ZYRTEC [Concomitant]
     Active Substance: CETIRIZINE HYDROCHLORIDE
     Dosage: 10 MG, 1X/DAY
     Route: 048
     Dates: start: 20130808
  5. ASPIRIN (E.C.) [Concomitant]
     Active Substance: ASPIRIN
     Dosage: 81 MG, AS NEEDED
     Route: 048
     Dates: start: 20170612
  6. NORTRIPTYLINE HCL [Concomitant]
     Active Substance: NORTRIPTYLINE HYDROCHLORIDE
     Dosage: 25 MG, 2X/DAY
     Route: 048
     Dates: start: 20161026
  7. PROTONIX [Concomitant]
     Active Substance: PANTOPRAZOLE SODIUM
     Indication: ABDOMINAL DISCOMFORT
     Dosage: 40 MG, 1X/DAY
     Route: 048
     Dates: start: 20140318
  8. XANAX [Concomitant]
     Active Substance: ALPRAZOLAM
     Indication: SENSORY DISTURBANCE
     Dosage: 1 MG, UNK, [1MG EVERY 6 HOURS]
  9. STOOL SOFTENER (DOCUSATE) [Concomitant]
     Active Substance: DOCUSATE
     Dosage: UNK
  10. LYRICA [Suspect]
     Active Substance: PREGABALIN
     Dosage: 300 MG, DAILY
     Route: 048
  11. ALPRAZOLAM. [Concomitant]
     Active Substance: ALPRAZOLAM
     Dosage: 1 MG, AS NEEDED(1 TABLET EVERY 6 HOURS PRN)
     Route: 048
     Dates: start: 2006
  12. CYANOCOBALAMIN. [Concomitant]
     Active Substance: CYANOCOBALAMIN
     Dosage: 1000 UG, UNK, (1000 MCG/ML, 1 ML IM EVERY 2 WEEKS)
     Route: 030
     Dates: start: 20160628
  13. CYANOCOBALAMIN. [Concomitant]
     Active Substance: CYANOCOBALAMIN
     Dosage: 1 ML, MONTHLY
     Route: 030
     Dates: start: 20170719
  14. SYMBICORT [Concomitant]
     Active Substance: BUDESONIDE\FORMOTEROL FUMARATE DIHYDRATE
     Dosage: 1 DF, 2X/DAY (160-4.5 MCG/ACT INHALATION AEROSOL, INHALE 1 PUFF TWICE A DAY)
     Route: 055
     Dates: start: 20170709
  15. ULTRAM [Concomitant]
     Active Substance: TRAMADOL HYDROCHLORIDE
     Indication: PAIN
     Dosage: UNK
     Dates: start: 2006, end: 2006
  16. ULTRAM [Concomitant]
     Active Substance: TRAMADOL HYDROCHLORIDE
     Dosage: 50 MG, AS NEEDED(1 TABLET EVERY 4 TO 6 HOURS AS NEEDED)
     Route: 048
     Dates: start: 20150923
  17. ACETAMINOPHEN W/HYDROCODONE [Concomitant]
     Active Substance: ACETAMINOPHEN\HYDROCODONE
     Dosage: 0.5 MG, AS NEEDED [(HYDROCODONE: 5MG)/(PARACETAMOL: 325 MG)]
     Route: 048
     Dates: start: 20170612
  18. XANAX [Concomitant]
     Active Substance: ALPRAZOLAM
     Indication: TRIGEMINAL NEURALGIA
  19. ZANTAC [Concomitant]
     Active Substance: RANITIDINE HYDROCHLORIDE
     Indication: HYPERSENSITIVITY
     Dosage: UNK
  20. LYRICA [Suspect]
     Active Substance: PREGABALIN
     Dosage: 75 MG, EVERY 4 HRS, (EVERY SIX HOURS)
     Route: 048
  21. CYANOCOBALAMIN. [Concomitant]
     Active Substance: CYANOCOBALAMIN
     Dosage: UNK
     Dates: start: 2004
  22. XOPENEX HFA [Concomitant]
     Active Substance: LEVALBUTEROL TARTRATE
     Dosage: UNK, AS NEEDED (45 MCG/ACT INHALATION)
     Dates: start: 20150204
  23. LYRICA [Suspect]
     Active Substance: PREGABALIN
     Dosage: 50 MG, 3X/DAY
     Route: 048
     Dates: start: 20130507
  24. LYRICA [Suspect]
     Active Substance: PREGABALIN
     Dosage: 150 MG, 3X/DAY (TAKE 2 CAPSULE EVERY 8 HOURS)/(2 CAPSULES, 3 TIMES PER DAY)
     Route: 048
  25. PROCTOZONE HC [Concomitant]
     Active Substance: HYDROCORTISONE
     Dosage: UNK
     Dates: start: 2008, end: 2008
  26. ZYRTEC [Concomitant]
     Active Substance: CETIRIZINE HYDROCHLORIDE
     Indication: HYPERSENSITIVITY
     Dosage: UNK
     Dates: start: 2006
  27. LYRICA [Suspect]
     Active Substance: PREGABALIN
     Dosage: UNK
     Route: 048
  28. LYRICA [Suspect]
     Active Substance: PREGABALIN
     Dosage: 200 MG, DAILY
     Route: 048
  29. LYRICA [Suspect]
     Active Substance: PREGABALIN
     Dosage: 75 MG, EVERY 4 HRS
     Route: 048
  30. CYANOCOBALAMIN. [Concomitant]
     Active Substance: CYANOCOBALAMIN
     Dosage: 1000 UG, UNK, (1000 MCG/ML, 1 ML IM EVERY 2 WEEKS)
     Route: 030
     Dates: start: 20160726
  31. PYRIDIUM [Concomitant]
     Active Substance: PHENAZOPYRIDINE
     Dosage: 100 MG, 2X/DAY
     Route: 048
     Dates: start: 20120515
  32. XOPENEX HFA [Concomitant]
     Active Substance: LEVALBUTEROL TARTRATE
     Dosage: UNK
     Dates: start: 2010
  33. XOPENEX [Concomitant]
     Active Substance: LEVALBUTEROL HYDROCHLORIDE
     Indication: ASTHMA
     Dosage: UNK, AS NEEDED (0.63 MG/3ML INHALATION, ONE VIAL EVERY 6 HRS AS NEEDED)
     Route: 055
     Dates: start: 20100304
  34. MULTAQ [Concomitant]
     Active Substance: DRONEDARONE
     Indication: CARDIAC DISORDER
     Dosage: UNK
  35. LYRICA [Suspect]
     Active Substance: PREGABALIN
     Indication: CEREBRAL DISORDER
     Dosage: 75 MG, UNK (4 TO 5 TIMES A DAY)
     Dates: start: 200605
  36. LYRICA [Suspect]
     Active Substance: PREGABALIN
     Dosage: 75 MG, AS NEEDED (1 PO Q6 PRN/1 CAPSULE EVERY 6 HOURS PRN/HAD TO TAKE EVERY 5 HOURS)
     Route: 048
     Dates: start: 20150923
  37. LYRICA [Suspect]
     Active Substance: PREGABALIN
     Dosage: 150 MG, 3X/DAY (EVERY 8 HOURS)
     Route: 048
  38. NITROSTAT [Concomitant]
     Active Substance: NITROGLYCERIN
     Indication: CHEST PAIN
     Dosage: UNK, AS NEEDED
     Dates: start: 2006
  39. LYRICA [Suspect]
     Active Substance: PREGABALIN
     Indication: TRIGEMINAL NEURALGIA
     Dosage: 75 MG, EVERY 4 HRS
     Dates: start: 2003
  40. LYRICA [Suspect]
     Active Substance: PREGABALIN
     Dosage: 150 MG, THRICE A DAY (TAKE 2 CAPSULE EVERY 8 HOURS)
     Route: 048
     Dates: start: 20161228
  41. LYRICA [Suspect]
     Active Substance: PREGABALIN
     Dosage: 75 MG, UNK
  42. NITROSTAT [Concomitant]
     Active Substance: NITROGLYCERIN
     Dosage: 0.4 MG, AS NEEDED (1 TABLET UNDER THE TONGUE EVERY 5 MINUTES FOR UP TO 3 DOSES AS NEEDED )
     Route: 060
     Dates: start: 20151119
  43. LYRICA [Suspect]
     Active Substance: PREGABALIN
     Dosage: 75 MG, EVERY 4 HRS, [HOW OFTEN DEPENDING ON HOW SHE SLEPT FROM THE TIME SHE WAKES]
  44. SYMBICORT [Concomitant]
     Active Substance: BUDESONIDE\FORMOTEROL FUMARATE DIHYDRATE
     Dosage: 1 DF, 2X/DAY (BUDESONIDE: 80MCG/ACT/FORMOTEROL FUMARATE: 4.5MCG/ACT)
     Route: 055
     Dates: start: 20130222

REACTIONS (47)
  - Emphysema [Unknown]
  - Insomnia [Unknown]
  - Myocardial infarction [Unknown]
  - Upper limb fracture [Recovering/Resolving]
  - Hallucination [Recovered/Resolved]
  - Disease progression [Unknown]
  - Feeling abnormal [Not Recovered/Not Resolved]
  - Thinking abnormal [Unknown]
  - Condition aggravated [Recovered/Resolved]
  - Drug dependence [Not Recovered/Not Resolved]
  - Trigeminal neuralgia [Unknown]
  - Headache [Unknown]
  - Body height decreased [Not Recovered/Not Resolved]
  - Eye irritation [Unknown]
  - Hypoaesthesia [Unknown]
  - Fall [Not Recovered/Not Resolved]
  - Product use issue [Unknown]
  - Peripheral swelling [Not Recovered/Not Resolved]
  - Condition aggravated [Not Recovered/Not Resolved]
  - Swollen tongue [Not Recovered/Not Resolved]
  - Eating disorder [Not Recovered/Not Resolved]
  - Speech disorder [Not Recovered/Not Resolved]
  - Tooth disorder [Unknown]
  - Paraesthesia [Not Recovered/Not Resolved]
  - Neuralgia [Unknown]
  - Drug tolerance [Unknown]
  - Lung disorder [Unknown]
  - Pain [Not Recovered/Not Resolved]
  - Dizziness [Not Recovered/Not Resolved]
  - Bronchitis [Recovered/Resolved]
  - Paralysis [Recovered/Resolved]
  - Vision blurred [Not Recovered/Not Resolved]
  - Condition aggravated [Not Recovered/Not Resolved]
  - Cerebral disorder [Not Recovered/Not Resolved]
  - Eye swelling [Not Recovered/Not Resolved]
  - Malaise [Unknown]
  - Burning sensation [Unknown]
  - Asthma [Recovered/Resolved]
  - Facial paralysis [Not Recovered/Not Resolved]
  - Arrhythmia [Unknown]
  - Drug ineffective [Unknown]
  - Lip swelling [Not Recovered/Not Resolved]
  - Swelling [Not Recovered/Not Resolved]
  - Cataract [Unknown]
  - Balance disorder [Not Recovered/Not Resolved]
  - Condition aggravated [Not Recovered/Not Resolved]
  - Weight decreased [Unknown]

NARRATIVE: CASE EVENT DATE: 2003
